FAERS Safety Report 6040847-1 (Version None)
Quarter: 2009Q1

REPORT INFORMATION
  Report Type: 
  Country: None (occurrence: None)
  Receive Date: 20090116
  Receipt Date: 20080611
  Transmission Date: 20090719
  Serious: No
  Sender: FDA-Public Use
  Company Number: US-BRISTOL-MYERS SQUIBB COMPANY-14224075

PATIENT
  Age: 52 Year
  Sex: Female
  Weight: 102 kg

DRUGS (7)
  1. ABILIFY [Suspect]
     Indication: BIPOLAR DISORDER
     Dosage: 5 MG 1/2 TABLET PER DAY
  2. TOPROL-XL [Concomitant]
  3. FLEXERIL [Concomitant]
  4. LISINOPRIL [Concomitant]
  5. HYDROCHLOROTHIAZIDE [Concomitant]
  6. DIPHENHYDRAMINE HCL [Concomitant]
  7. CHANTIX [Concomitant]
     Indication: EX-TOBACCO USER
     Dates: start: 20080606

REACTIONS (4)
  - FATIGUE [None]
  - MUSCLE TIGHTNESS [None]
  - MYALGIA [None]
  - SENSATION OF HEAVINESS [None]
